FAERS Safety Report 7493268-9 (Version None)
Quarter: 2011Q2

REPORT INFORMATION
  Report Type: 
  Country: None (occurrence: None)
  Receive Date: 20110520
  Receipt Date: 20110518
  Transmission Date: 20111010
  Serious: Yes (Other)
  Sender: FDA-Public Use
  Company Number: AU-PFIZER INC-2011108340

PATIENT
  Age: 31 Year
  Sex: Female
  Weight: 60 kg

DRUGS (2)
  1. PRISTIQ [Suspect]
     Dosage: 50 MG, UNK
     Dates: start: 20100915
  2. VARENICLINE TARTRATE [Suspect]
     Dosage: 0.5 UNK, UNK
     Dates: start: 20110413

REACTIONS (3)
  - MOOD SWINGS [None]
  - AFFECT LABILITY [None]
  - SEROTONIN SYNDROME [None]
